FAERS Safety Report 4719809-X (Version None)
Quarter: 2005Q3

REPORT INFORMATION
  Report Type: 
  Country: None (occurrence: None)
  Receive Date: 20050721
  Receipt Date: 20041111
  Transmission Date: 20060218
  Serious: No
  Sender: FDA-Public Use
  Company Number: US-GLAXOSMITHKLINE-A0533599A

PATIENT
  Age: 81 Year
  Sex: Male

DRUGS (9)
  1. AVANDIA [Suspect]
     Dosage: 4MG PER DAY
     Route: 048
     Dates: start: 20041108
  2. GLUCOPHAGE [Concomitant]
  3. AMARYL [Concomitant]
  4. NEXIUM [Concomitant]
  5. NEURONTIN [Concomitant]
  6. DETROL [Concomitant]
  7. GABAPENTIN [Concomitant]
  8. UROXATRAL [Concomitant]
  9. LANOXIN [Concomitant]

REACTIONS (1)
  - BLOOD GLUCOSE INCREASED [None]
